FAERS Safety Report 8457933-9 (Version None)
Quarter: 2012Q2

REPORT INFORMATION
  Report Type: 
  Country: None (occurrence: None)
  Receive Date: 20120618
  Receipt Date: 20120618
  Transmission Date: 20120825
  Serious: Yes (Hospitalization)
  Sender: FDA-Public Use
  Company Number: None

PATIENT
  Sex: Female

DRUGS (7)
  1. SIMVASTATIN [Concomitant]
  2. PREDNISONE TAB [Concomitant]
  3. FOSINOPRIL SODIUM [Concomitant]
  4. CARVEDILOL [Concomitant]
  5. POTASSIUM ACETATE [Concomitant]
  6. ENBREL [Suspect]
     Indication: RHEUMATOID ARTHRITIS
     Dosage: 50MG WEEKLY SC
     Route: 058
     Dates: start: 20100301, end: 20120301
  7. LEVOTHYROXINE [Concomitant]

REACTIONS (2)
  - DIVERTICULITIS [None]
  - ABSCESS INTESTINAL [None]
